FAERS Safety Report 9649045 (Version 2)
Quarter: 2014Q1

REPORT INFORMATION
  Report Type: Spontaneous
  Country: US (occurrence: None)
  Receive Date: 20131018
  Receipt Date: 20140122
  Transmission Date: 20141002
  Serious: Yes (Other)
  Sender: FDA-Public Use
  Company Number: AEGR000118

PATIENT
  Age: 70 Year
  Sex: Female
  Weight: 54.4 kg

DRUGS (7)
  1. JUXTAPID [Suspect]
     Indication: TYPE IIA HYPERLIPIDAEMIA
     Route: 048
     Dates: start: 20130619, end: 2013
  2. AMLODIPINE (AMLODIPINE MALEATE) [Concomitant]
  3. ASPIRIN (ACETYLSALICYLIC ACID) [Concomitant]
  4. ATENOLOL (ATENOLOL [Concomitant]
  5. ISOSORBIDE DINITRATE (ISOSORBIDE DINITRATE) (ISOSORBIDE DINITRATE) [Concomitant]
  6. NORCO (HYDROCODONE BITARTRATE, PARACETAMOL [Concomitant]
  7. PLAVIX (CLOPIDOGREL BISULFATE) [Concomitant]

REACTIONS (1)
  - Diarrhoea [None]
